FAERS Safety Report 26066459 (Version 1)
Quarter: 2025Q4

REPORT INFORMATION
  Report Type: Spontaneous
  Country: US (occurrence: US)
  Receive Date: 20251119
  Receipt Date: 20251119
  Transmission Date: 20260117
  Serious: No
  Sender: FRESENIUS MEDICAL CARE
  Company Number: US-FMCRTG-FMC-2511-001793

PATIENT
  Sex: Female

DRUGS (1)
  1. DELFLEX [Suspect]
     Active Substance: CALCIUM CHLORIDE\DEXTROSE\MAGNESIUM CHLORIDE\SODIUM CHLORIDE\SODIUM LACTATE
     Indication: End stage renal disease
     Dosage: FILLS = 5; FIRST FILL VOLUME = 2300ML; TIDAL FILL VOLUME = 2200ML; TIDAL DRAIN VOLUME = 2200ML; LAST
     Route: 033

REACTIONS (2)
  - Dyspnoea [Unknown]
  - Abdominal distension [Unknown]
